FAERS Safety Report 5525277-0 (Version None)
Quarter: 2007Q4

REPORT INFORMATION
  Report Type: 
  Country: None (occurrence: None)
  Receive Date: 20071126
  Receipt Date: 20071114
  Transmission Date: 20080405
  Serious: Yes (Death, Hospitalization, Other)
  Sender: FDA-Public Use
  Company Number: HU-ROCHE-528723

PATIENT
  Age: 51 Year
  Sex: Female

DRUGS (2)
  1. PEGASYS [Suspect]
     Route: 065
     Dates: start: 20070122, end: 20070725
  2. COPEGUS [Concomitant]
     Route: 048
     Dates: start: 20070122, end: 20070725

REACTIONS (4)
  - AUTOIMMUNE DISORDER [None]
  - PANCYTOPENIA [None]
  - RETINAL DETACHMENT [None]
  - SEPTIC SHOCK [None]
